FAERS Safety Report 10830667 (Version 1)
Quarter: 2015Q1

REPORT INFORMATION
  Report Type: Spontaneous
  Country: US (occurrence: US)
  Receive Date: 20150219
  Receipt Date: 20150219
  Transmission Date: 20150721
  Serious: Yes (Hospitalization, Other)
  Sender: FDA-Public Use
  Company Number: US-SA-2015SA017653

PATIENT
  Age: 69 Year
  Sex: Female
  Weight: 71 kg

DRUGS (15)
  1. LIPITOR [Concomitant]
     Active Substance: ATORVASTATIN CALCIUM
     Dates: start: 20070910
  2. LASIX [Suspect]
     Active Substance: FUROSEMIDE
     Route: 065
     Dates: end: 2012
  3. STARSIS [Concomitant]
     Active Substance: NATEGLINIDE
     Dates: start: 20071018, end: 20080514
  4. PROGRAF [Suspect]
     Active Substance: TACROLIMUS\TACROLIMUS ANHYDROUS
     Indication: LUPUS NEPHRITIS
     Route: 048
     Dates: start: 20071109, end: 20081105
  5. OLMETEC [Concomitant]
     Active Substance: OLMESARTAN MEDOXOMIL
     Dates: start: 20071018
  6. PROGRAF [Suspect]
     Active Substance: TACROLIMUS\TACROLIMUS ANHYDROUS
     Indication: LUPUS NEPHRITIS
     Route: 048
     Dates: start: 20081106, end: 20090115
  7. PREDONINE [Suspect]
     Active Substance: PREDNISOLONE\PREDNISOLONE ACETATE\PREDNISOLONE SODIUM SUCCINATE
     Indication: LUPUS NEPHRITIS
     Route: 048
     Dates: start: 20071004, end: 20080603
  8. PREDONINE [Concomitant]
     Active Substance: PREDNISOLONE\PREDNISOLONE ACETATE\PREDNISOLONE SODIUM SUCCINATE
     Dates: start: 20080829, end: 20090416
  9. TENORMIN [Concomitant]
     Active Substance: ATENOLOL
     Dates: start: 20070910
  10. AMLODIN [Concomitant]
     Active Substance: AMLODIPINE BESYLATE
     Dosage: ORODISPERSIBLE TABLET
     Dates: start: 20070910
  11. FLUITRAN [Concomitant]
     Active Substance: TRICHLORMETHIAZIDE
     Dates: start: 20070910
  12. PREDONINE [Suspect]
     Active Substance: PREDNISOLONE\PREDNISOLONE ACETATE\PREDNISOLONE SODIUM SUCCINATE
     Indication: LUPUS NEPHRITIS
     Route: 048
     Dates: start: 20080604, end: 20080828
  13. SELBEX [Concomitant]
     Active Substance: TEPRENONE
     Dates: start: 20071018
  14. ADALAT [Concomitant]
     Active Substance: NIFEDIPINE
     Dosage: MODIFIED-RELEASE TABLET
     Dates: start: 20081106
  15. ONEALFA [Concomitant]
     Active Substance: ALFACALCIDOL
     Route: 048
     Dates: start: 20070910

REACTIONS (11)
  - Blood creatinine increased [Unknown]
  - Hypokalaemia [Recovered/Resolved]
  - Peritonitis [Recovered/Resolved]
  - Beta 2 microglobulin urine increased [Unknown]
  - Hyperuricaemia [Recovered/Resolved]
  - Nasopharyngitis [Recovered/Resolved]
  - Type 2 diabetes mellitus [Unknown]
  - Hypoalbuminaemia [Unknown]
  - Proteinuria [Recovering/Resolving]
  - Urinary casts [Unknown]
  - Headache [Recovered/Resolved]

NARRATIVE: CASE EVENT DATE: 20071206
